FAERS Safety Report 7278724-0 (Version None)
Quarter: 2011Q1

REPORT INFORMATION
  Report Type: 
  Country: None (occurrence: None)
  Receive Date: 20110207
  Receipt Date: 20110126
  Transmission Date: 20110831
  Serious: Yes (Other)
  Sender: FDA-Public Use
  Company Number: PHHY2011GB05667

PATIENT
  Age: 79 Year
  Sex: Female

DRUGS (2)
  1. METHOTREXATE [Suspect]
     Dosage: UNK
  2. ABATACEPT [Suspect]
     Dosage: UNK
     Dates: start: 20050101

REACTIONS (2)
  - METASTASIS [None]
  - BRONCHIAL CARCINOMA [None]
